FAERS Safety Report 9549010 (Version 1)
Quarter: 2013Q3

REPORT INFORMATION
  Report Type: Spontaneous
  Country: US (occurrence: US)
  Receive Date: 20130924
  Receipt Date: 20130924
  Transmission Date: 20140515
  Serious: No
  Sender: FDA-Public Use
  Company Number: US-PFIZER INC-2013271515

PATIENT
  Age: 75 Year
  Sex: Female
  Weight: 58.96 kg

DRUGS (8)
  1. PREMARIN [Suspect]
     Indication: VULVOVAGINAL DRYNESS
     Dosage: UNK
     Route: 067
  2. PREMARIN [Suspect]
     Indication: VULVOVAGINAL DISCOMFORT
  3. CLOBETASOL PROPIONATE [Suspect]
     Indication: VULVOVAGINAL DRYNESS
     Dosage: UNK
     Dates: start: 20130901
  4. CLOBETASOL PROPIONATE [Suspect]
     Indication: VULVOVAGINAL DISCOMFORT
  5. SIMVASTATIN [Concomitant]
     Dosage: 20 MG, 1X/DAY
  6. XANAX [Concomitant]
     Dosage: 0.125 MG, 3X/DAY
  7. ALEVE [Concomitant]
     Dosage: UNK, 2X/DAY
  8. VITAMINS [Concomitant]
     Dosage: UNK

REACTIONS (1)
  - Drug ineffective [Unknown]
